FAERS Safety Report 17354245 (Version 1)
Quarter: 2020Q1

REPORT INFORMATION
  Report Type: Spontaneous
  Country: US (occurrence: US)
  Receive Date: 20200130
  Receipt Date: 20200130
  Transmission Date: 20200409
  Serious: Yes (Other)
  Sender: FDA-Public Use
  Company Number: None

PATIENT
  Age: 35 Year
  Sex: Female
  Weight: 47.25 kg

DRUGS (1)
  1. GAMMAGARD [Suspect]
     Active Substance: HUMAN IMMUNOGLOBULIN G
     Indication: AUTONOMIC NEUROPATHY
     Dosage: ?          OTHER FREQUENCY:ONCE DAILY X 2 DAY;?
     Route: 042

REACTIONS (2)
  - Respiration abnormal [None]
  - Throat irritation [None]

NARRATIVE: CASE EVENT DATE: 20200129
